FAERS Safety Report 7948135-0 (Version None)
Quarter: 2011Q4

REPORT INFORMATION
  Report Type: 
  Country: None (occurrence: None)
  Receive Date: 20111130
  Receipt Date: 20111115
  Transmission Date: 20120403
  Serious: Yes (Hospitalization, Disabling, Other)
  Sender: FDA-Public Use
  Company Number: JP-SANOFI-AVENTIS-2011SA071936

PATIENT
  Age: 42 Year
  Sex: Female
  Weight: 43.7 kg

DRUGS (3)
  1. COLCHICINE [Concomitant]
  2. ONE-ALPHA [Concomitant]
     Dosage: DOSE: 0.5 MG
     Route: 048
     Dates: start: 20110928, end: 20111018
  3. LASIX [Suspect]
     Route: 048
     Dates: start: 19920724, end: 20111018

REACTIONS (6)
  - METABOLIC ALKALOSIS [None]
  - GOUT [None]
  - RENAL FAILURE CHRONIC [None]
  - HYPOKALAEMIA [None]
  - PSEUDO-BARTTER SYNDROME [None]
  - GOUTY ARTHRITIS [None]
